FAERS Safety Report 8502505-0 (Version None)
Quarter: 2012Q3

REPORT INFORMATION
  Report Type: 
  Country: None (occurrence: None)
  Receive Date: 20120711
  Receipt Date: 20120610
  Transmission Date: 20120928
  Serious: No
  Sender: FDA-Public Use
  Company Number: US-BAYER-2012-058626

PATIENT

DRUGS (4)
  1. ASPIRIN [Suspect]
     Indication: ANALGESIC THERAPY
     Dosage: UNK
     Route: 048
  2. ALEVE (CAPLET) [Suspect]
     Indication: ANALGESIC THERAPY
     Dosage: UNK
     Route: 048
  3. IBUPROFEN (ADVIL) [Concomitant]
  4. ACETAMINOPHEN [Concomitant]

REACTIONS (1)
  - PAIN [None]
